FAERS Safety Report 6533099-7 (Version None)
Quarter: 2010Q1

REPORT INFORMATION
  Report Type: 
  Country: None (occurrence: None)
  Receive Date: 20100111
  Receipt Date: 20091123
  Transmission Date: 20100710
  Serious: Yes (Hospitalization, Other)
  Sender: FDA-Public Use
  Company Number: CN-SANOFI-AVENTIS-2009SA006074

PATIENT
  Age: 8 Year
  Sex: Male

DRUGS (6)
  1. HYDROCORTISONE [Suspect]
     Indication: ADRENAL INSUFFICIENCY
     Route: 065
  2. HYDROCORTISONE [Suspect]
     Route: 065
  3. CYCLOSPORINE [Concomitant]
     Indication: GRAFT VERSUS HOST DISEASE
     Route: 065
  4. BUSULFAN [Concomitant]
     Indication: IMMUNOSUPPRESSION
     Route: 065
  5. CYCLOPHOSPHAMIDE [Concomitant]
     Indication: IMMUNOSUPPRESSION
     Route: 042
  6. ANTI-THYMOCYTE GLOBULIN NOS [Concomitant]
     Indication: IMMUNOSUPPRESSION
     Route: 065

REACTIONS (6)
  - EPSTEIN-BARR VIRUS ASSOCIATED LYMPHOPROLIFERATIVE DISORDER [None]
  - GRAFT VERSUS HOST DISEASE [None]
  - HYPOTENSION [None]
  - LYMPHADENOPATHY [None]
  - PYREXIA [None]
  - SEPSIS [None]
